FAERS Safety Report 11950959 (Version 2)
Quarter: 2016Q1

REPORT INFORMATION
  Report Type: Spontaneous
  Country: US (occurrence: US)
  Receive Date: 20160126
  Receipt Date: 20160205
  Transmission Date: 20160526
  Serious: Yes (Other)
  Sender: FDA-Public Use
  Company Number: US-WEST-WARD PHARMACEUTICALS CORP.-US-H14001-16-00123

PATIENT
  Age: 89 Year
  Sex: Female

DRUGS (14)
  1. CAPTOPRIL. [Suspect]
     Active Substance: CAPTOPRIL
     Route: 065
     Dates: end: 201601
  2. NIFEDIPINE. [Suspect]
     Active Substance: NIFEDIPINE
     Route: 065
     Dates: start: 201601, end: 2016
  3. CAPTOPRIL. [Suspect]
     Active Substance: CAPTOPRIL
     Indication: HYPERTENSION
     Route: 065
     Dates: end: 201511
  4. CAPTOPRIL. [Suspect]
     Active Substance: CAPTOPRIL
     Route: 065
     Dates: start: 201511
  5. LISINOPRIL. [Suspect]
     Active Substance: LISINOPRIL
     Indication: HYPERTENSION
     Route: 065
     Dates: start: 201601, end: 201601
  6. LIPITOR [Concomitant]
     Active Substance: ATORVASTATIN CALCIUM
     Indication: PRODUCT USED FOR UNKNOWN INDICATION
     Route: 065
  7. HYDRALAZINE [Suspect]
     Active Substance: HYDRALAZINE HYDROCHLORIDE
     Indication: HYPERTENSION
     Route: 065
     Dates: start: 20160115
  8. NIFEDIPINE. [Suspect]
     Active Substance: NIFEDIPINE
     Route: 065
     Dates: start: 201601
  9. LABETALOL [Suspect]
     Active Substance: LABETALOL\LABETALOL HYDROCHLORIDE
     Indication: HYPERTENSION
     Route: 065
     Dates: start: 201601, end: 201601
  10. HYDRALAZINE [Suspect]
     Active Substance: HYDRALAZINE HYDROCHLORIDE
     Route: 065
     Dates: start: 201601
  11. LABETALOL [Suspect]
     Active Substance: LABETALOL\LABETALOL HYDROCHLORIDE
     Route: 065
     Dates: start: 201601, end: 201601
  12. NIFEDIPINE. [Suspect]
     Active Substance: NIFEDIPINE
     Indication: HYPERTENSION
     Route: 065
     Dates: start: 201601
  13. METOPROLOL. [Suspect]
     Active Substance: METOPROLOL
     Indication: HYPERTENSION
     Route: 065
     Dates: end: 201601
  14. METOPROLOL. [Suspect]
     Active Substance: METOPROLOL
     Route: 065
     Dates: start: 201601

REACTIONS (5)
  - Renal disorder [Unknown]
  - Hypertensive crisis [Not Recovered/Not Resolved]
  - Intentional underdose [Recovered/Resolved]
  - Product preparation error [Recovered/Resolved]
  - Drug ineffective [Recovered/Resolved]

NARRATIVE: CASE EVENT DATE: 201601
